FAERS Safety Report 15397605 (Version 2)
Quarter: 2018Q4

REPORT INFORMATION
  Report Type: Spontaneous
  Country: US (occurrence: US)
  Receive Date: 20180918
  Receipt Date: 20181004
  Transmission Date: 20190204
  Serious: Yes (Hospitalization)
  Sender: FDA-Public Use
  Company Number: US-ASTRAZENECA-2018SF18087

PATIENT
  Age: 791 Month
  Sex: Female
  Weight: 93.9 kg

DRUGS (7)
  1. SYMBICORT [Suspect]
     Active Substance: BUDESONIDE\FORMOTEROL FUMARATE DIHYDRATE
     Indication: BRONCHITIS
     Dosage: 160/4.5 MCG, 2 PUFFS IN THE MORNING AND 2 PUFFS IN THE EVENING
     Route: 055
  2. SYMBICORT [Suspect]
     Active Substance: BUDESONIDE\FORMOTEROL FUMARATE DIHYDRATE
     Indication: ASTHMA
     Dosage: 160/4.5 MCG, 2 PUFFS IN THE MORNING AND 2 PUFFS IN THE EVENING
     Route: 055
  3. SYMBICORT [Suspect]
     Active Substance: BUDESONIDE\FORMOTEROL FUMARATE DIHYDRATE
     Indication: CHRONIC OBSTRUCTIVE PULMONARY DISEASE
     Dosage: 160/4.5 MCG, 2 PUFFS IN THE MORNING AND 2 PUFFS IN THE EVENING
     Route: 055
  4. ALPRAZOLAM. [Concomitant]
     Active Substance: ALPRAZOLAM
     Indication: ANXIETY
     Dosage: 0.5 MG PRESCRIBED EVERY 8 HOURS AS NEEDED
  5. TUDORZA PRESSAIR [Suspect]
     Active Substance: ACLIDINIUM BROMIDE
     Indication: ASTHMA
     Dosage: 400 UG, 1 PUFF IN THE MORNING AND 1 PUFF IN THE EVENING
     Route: 055
  6. TUDORZA PRESSAIR [Suspect]
     Active Substance: ACLIDINIUM BROMIDE
     Indication: CHRONIC OBSTRUCTIVE PULMONARY DISEASE
     Dosage: 400 UG, 1 PUFF IN THE MORNING AND 1 PUFF IN THE EVENING
     Route: 055
  7. TUDORZA PRESSAIR [Suspect]
     Active Substance: ACLIDINIUM BROMIDE
     Indication: BRONCHITIS
     Dosage: 400 UG, 1 PUFF IN THE MORNING AND 1 PUFF IN THE EVENING
     Route: 055

REACTIONS (11)
  - Pneumonia [Recovering/Resolving]
  - Fatigue [Unknown]
  - Somatic symptom disorder [Not Recovered/Not Resolved]
  - Dyspnoea [Unknown]
  - Body height decreased [Unknown]
  - Chest discomfort [Unknown]
  - Weight fluctuation [Unknown]
  - Breath sounds abnormal [Unknown]
  - Product dose omission [Unknown]
  - Off label use [Not Recovered/Not Resolved]
  - Device failure [Unknown]

NARRATIVE: CASE EVENT DATE: 201807
